FAERS Safety Report 4315729-3 (Version None)
Quarter: 2004Q1

REPORT INFORMATION
  Report Type: 
  Country: None (occurrence: None)
  Receive Date: 20040310
  Receipt Date: 20040302
  Transmission Date: 20041129
  Serious: No
  Sender: FDA-Public Use
  Company Number: 2004SE01174

PATIENT
  Age: 39 Year
  Sex: Female

DRUGS (2)
  1. XYLOCAINE W/ EPINEPHRENE [Suspect]
     Indication: DENTAL TREATMENT
     Dosage: 20 MG/ML+ 12.5 UG/ML
     Dates: start: 20040224, end: 20040224
  2. IMIGRAN [Concomitant]

REACTIONS (3)
  - ABDOMINAL PAIN [None]
  - DIZZINESS [None]
  - NAUSEA [None]
